FAERS Safety Report 8881536 (Version 2)
Quarter: 2012Q4

REPORT INFORMATION
  Report Type: Report from Study
  Country: US (occurrence: US)
  Receive Date: 20121102
  Receipt Date: 20121106
  Transmission Date: 20130627
  Serious: Yes (Other)
  Sender: FDA-Public Use
  Company Number: US-PFIZER INC-2012273962

PATIENT
  Age: 62 Year
  Sex: Female
  Weight: 83.45 kg

DRUGS (8)
  1. LIPITOR [Suspect]
     Indication: PAIN
     Dosage: UNK
  2. SIMVASTATIN [Suspect]
     Dosage: UNK
  3. NIASPAN [Suspect]
     Indication: INCREASED LDL
     Dosage: 1000 mg, At night (1000 mg, 1 in 1 D)
     Dates: start: 201009
  4. LOSARTAN POTASSIUM W/HYDROCHLOROTHIAZIDE [Suspect]
     Indication: BLOOD PRESSURE
     Dosage: 100/25mg (1/2 dosage of 100/25mg)
  5. ASPIRIN [Concomitant]
     Dosage: UNK
  6. AMLODIPINE [Concomitant]
     Dosage: UNK
  7. LANSOPRAZOLE [Concomitant]
     Dosage: UNK
  8. MONTELUKAST [Concomitant]
     Dosage: UNK

REACTIONS (12)
  - Type 2 diabetes mellitus [Recovered/Resolved]
  - Gait disturbance [Unknown]
  - Feeling abnormal [Unknown]
  - Muscular weakness [Unknown]
  - Pain in extremity [Unknown]
  - Back pain [Recovered/Resolved]
  - Flushing [Recovered/Resolved]
  - Vitamin D decreased [Unknown]
  - Dizziness [Recovered/Resolved]
  - Glucose tolerance impaired [Unknown]
  - Blood pressure decreased [Recovered/Resolved]
  - Respiratory disorder [Unknown]
